FAERS Safety Report 8292406-8 (Version None)
Quarter: 2012Q2

REPORT INFORMATION
  Report Type: 
  Country: None (occurrence: None)
  Receive Date: 20120417
  Receipt Date: 20120416
  Transmission Date: 20120825
  Serious: Yes (Other)
  Sender: FDA-Public Use
  Company Number: IT-PFIZER INC-2012080439

PATIENT
  Age: 59 Year
  Sex: Female

DRUGS (3)
  1. EFFEXOR [Suspect]
     Dosage: 75 MG
  2. EFFEXOR [Suspect]
     Dosage: 37.5 MG
  3. ATENOLOL [Concomitant]
     Indication: BLOOD PRESSURE
     Dosage: UNK

REACTIONS (6)
  - HALLUCINATION [None]
  - VOMITING [None]
  - PORPHYRIA [None]
  - NAUSEA [None]
  - ASTHENIA [None]
  - DIZZINESS [None]
